FAERS Safety Report 7515014-2 (Version None)
Quarter: 2011Q2

REPORT INFORMATION
  Report Type: 
  Country: None (occurrence: None)
  Receive Date: 20110601
  Receipt Date: 20110518
  Transmission Date: 20111010
  Serious: Yes (Other)
  Sender: FDA-Public Use
  Company Number: PHHY2009BR18389

PATIENT
  Sex: Female
  Weight: 64 kg

DRUGS (5)
  1. RASILEZ [Suspect]
     Dosage: 150 MG
     Route: 048
  2. LANTUS [Concomitant]
     Indication: DIABETES MELLITUS
     Dosage: 24 U, QD
     Route: 058
     Dates: start: 20080101
  3. ENALAPRIL [Concomitant]
     Indication: RENAL IMPAIRMENT
     Dosage: 10 MG, BID,1 TABLET IN THE MORNING AND 1 IN THE EVENING
     Route: 048
     Dates: start: 20090101
  4. RASILEZ [Suspect]
     Indication: RENAL IMPAIRMENT
     Dosage: HALF TABLET (300 MG) DAILY
     Route: 048
     Dates: start: 20090101
  5. NOVORAPID [Concomitant]
     Indication: DIABETES MELLITUS
     Dosage: UNK
     Route: 058
     Dates: start: 20090101

REACTIONS (5)
  - URINE ODOUR ABNORMAL [None]
  - WRONG TECHNIQUE IN DRUG USAGE PROCESS [None]
  - CHILLS [None]
  - URINARY TRACT INFECTION [None]
  - RENAL COLIC [None]
